FAERS Safety Report 24586344 (Version 1)
Quarter: 2024Q4

REPORT INFORMATION
  Report Type: Report from Study
  Country: US (occurrence: US)
  Receive Date: 20241106
  Receipt Date: 20241106
  Transmission Date: 20250115
  Serious: Yes (Other)
  Sender: BIOGEN
  Company Number: US-BIOGEN-2024BI01286190

PATIENT
  Sex: Female

DRUGS (2)
  1. TYSABRI [Suspect]
     Active Substance: NATALIZUMAB
     Indication: Multiple sclerosis
     Route: 050
     Dates: start: 20101110
  2. TYSABRI [Suspect]
     Active Substance: NATALIZUMAB
     Route: 050
     Dates: start: 20070123, end: 20100709

REACTIONS (10)
  - Infection susceptibility increased [Unknown]
  - Bronchitis [Unknown]
  - Chronic sinusitis [Unknown]
  - Asthma [Unknown]
  - Supraventricular tachycardia [Unknown]
  - Memory impairment [Unknown]
  - Hypotension [Unknown]
  - Multiple allergies [Unknown]
  - Fatigue [Unknown]
  - Upper respiratory tract infection [Unknown]
